FAERS Safety Report 5833593-8 (Version None)
Quarter: 2008Q4

REPORT INFORMATION
  Report Type: 
  Country: None (occurrence: None)
  Receive Date: 20080805
  Receipt Date: 20080723
  Transmission Date: 20090506
  Serious: Yes (Hospitalization, Other)
  Sender: FDA-Public Use
  Company Number: US-AVENTIS-200718352US

PATIENT
  Sex: Female
  Weight: 105 kg

DRUGS (3)
  1. KETEK [Suspect]
     Dates: start: 20070305
  2. KETEK [Suspect]
     Dosage: DOSE: UNK
     Dates: start: 20060801, end: 20060801
  3. KETEK [Suspect]
     Dosage: DOSE: UNK
     Dates: start: 20070201, end: 20070201

REACTIONS (22)
  - ACUTE SINUSITIS [None]
  - ALANINE AMINOTRANSFERASE INCREASED [None]
  - ARTHRALGIA [None]
  - ASPARTATE AMINOTRANSFERASE INCREASED [None]
  - BIOPSY LIVER ABNORMAL [None]
  - BLOOD ALKALINE PHOSPHATASE INCREASED [None]
  - BRONCHITIS [None]
  - CARPAL TUNNEL SYNDROME [None]
  - CONJUNCTIVITIS [None]
  - EMOTIONAL DISTRESS [None]
  - FAMILY STRESS [None]
  - FATIGUE [None]
  - HEPATIC FIBROSIS [None]
  - HEPATIC STEATOSIS [None]
  - HYPERLIPIDAEMIA [None]
  - HYPERTENSION [None]
  - HYPERTHYROIDISM [None]
  - INFLAMMATION [None]
  - INJURY [None]
  - LIVER FUNCTION TEST ABNORMAL [None]
  - RESTLESS LEGS SYNDROME [None]
  - WEIGHT DECREASED [None]
